FAERS Safety Report 5892743-8 (Version None)
Quarter: 2008Q3

REPORT INFORMATION
  Report Type: 
  Country: None (occurrence: None)
  Receive Date: 20080923
  Receipt Date: 20080912
  Transmission Date: 20090109
  Serious: Yes (Other)
  Sender: FDA-Public Use
  Company Number: US-BAYER-200833559NA

PATIENT
  Sex: Female

DRUGS (2)
  1. MIRENA [Suspect]
     Indication: DRUG USE FOR UNKNOWN INDICATION
     Route: 015
     Dates: start: 20030101
  2. DEPO PREVARA [Concomitant]

REACTIONS (7)
  - BREAST SWELLING [None]
  - COMPLICATION OF DEVICE REMOVAL [None]
  - IUD MIGRATION [None]
  - LOOP ELECTROSURGICAL EXCISION PROCEDURE [None]
  - NEOPLASM MALIGNANT [None]
  - SCAR [None]
  - UTERINE RUPTURE [None]
